FAERS Safety Report 14413635 (Version 1)
Quarter: 2018Q1

REPORT INFORMATION
  Report Type: Report from Study
  Country: US (occurrence: US)
  Receive Date: 20180119
  Receipt Date: 20180119
  Transmission Date: 20180509
  Serious: Yes (Hospitalization)
  Sender: FDA-Public Use
  Company Number: US-ACTELION-A-NJ2018-165954

PATIENT
  Age: 81 Year
  Sex: Male
  Weight: 76.19 kg

DRUGS (3)
  1. ADCIRCA [Concomitant]
     Active Substance: TADALAFIL
  2. UPTRAVI [Suspect]
     Active Substance: SELEXIPAG
     Indication: PULMONARY ARTERIAL HYPERTENSION
     Dosage: 1400 MCG, BID
     Route: 048
  3. ELIQUIS [Concomitant]
     Active Substance: APIXABAN

REACTIONS (3)
  - Peripheral swelling [Unknown]
  - Unevaluable event [Unknown]
  - Fluid retention [Unknown]
